FAERS Safety Report 5740434-6 (Version None)
Quarter: 2008Q2

REPORT INFORMATION
  Report Type: 
  Country: None (occurrence: None)
  Receive Date: 20080516
  Receipt Date: 20080514
  Transmission Date: 20081010
  Serious: No
  Sender: FDA-Public Use
  Company Number: US-GILEAD-2007-0014715

PATIENT
  Sex: Male
  Weight: 86.26 kg

DRUGS (8)
  1. LETAIRIS [Suspect]
     Indication: PULMONARY ARTERIAL HYPERTENSION
     Route: 048
     Dates: start: 20071106
  2. PROTONIX [Concomitant]
     Indication: GASTROOESOPHAGEAL REFLUX DISEASE
     Route: 048
  3. FERROUS SULFATE TAB [Concomitant]
     Indication: ANAEMIA
     Route: 048
  4. WARFARIN SODIUM [Concomitant]
     Indication: ANTICOAGULANT THERAPY
     Route: 048
  5. BUPROPION HCL [Concomitant]
     Indication: DEPRESSION
     Route: 048
  6. VIAGRA [Concomitant]
     Indication: PULMONARY ARTERIAL HYPERTENSION
     Route: 048
  7. CITALOPRAM HYDROBROMIDE [Concomitant]
     Indication: DEPRESSION
     Route: 048
  8. FUROSEMIDE [Concomitant]
     Indication: PULMONARY ARTERIAL HYPERTENSION
     Route: 048

REACTIONS (2)
  - DIARRHOEA [None]
  - HEADACHE [None]
